FAERS Safety Report 5672838-4 (Version None)
Quarter: 2008Q1

REPORT INFORMATION
  Report Type: 
  Country: None (occurrence: None)
  Receive Date: 20080319
  Receipt Date: 20080304
  Transmission Date: 20080703
  Serious: Yes (Life-Threatening, Congenital Anomaly)
  Sender: FDA-Public Use
  Company Number: A0640661A

PATIENT
  Sex: Female
  Weight: 3.1 kg

DRUGS (7)
  1. PAXIL CR [Suspect]
     Dosage: 25MG PER DAY
     Dates: start: 20030915
  2. VITAMIN TAB [Concomitant]
  3. NPH INSULIN [Concomitant]
  4. HUMULIN N [Concomitant]
  5. STEROID [Concomitant]
     Dates: start: 20040501
  6. BENADRYL [Concomitant]
     Dates: start: 20040501
  7. CLARITIN [Concomitant]
     Dates: start: 20040501

REACTIONS (20)
  - ASTHMA [None]
  - ATRIAL SEPTAL DEFECT [None]
  - BLOOD GLUCOSE DECREASED [None]
  - BRONCHIAL HYPERREACTIVITY [None]
  - BRONCHOSPASM [None]
  - CARDIAC MURMUR [None]
  - COUGH [None]
  - CYANOSIS [None]
  - DRUG EXPOSURE DURING PREGNANCY [None]
  - DYSPNOEA [None]
  - HEART DISEASE CONGENITAL [None]
  - INCREASED BRONCHIAL SECRETION [None]
  - INJURY [None]
  - LUNG DISORDER [None]
  - PAIN [None]
  - PERSISTENT FOETAL CIRCULATION [None]
  - PNEUMONIA [None]
  - PULMONARY VALVE STENOSIS [None]
  - RESPIRATORY DISTRESS [None]
  - WHEEZING [None]
